FAERS Safety Report 21510792 (Version 1)
Quarter: 2022Q4

REPORT INFORMATION
  Report Type: Spontaneous
  Country: US (occurrence: US)
  Receive Date: 20221026
  Receipt Date: 20221026
  Transmission Date: 20230113
  Serious: No
  Sender: FDA-Public Use
  Company Number: US-PURDUE PHARMA-USA-2022-0293506

PATIENT

DRUGS (4)
  1. OXYCODONE HYDROCHLORIDE [Suspect]
     Active Substance: OXYCODONE HYDROCHLORIDE
     Indication: Complex regional pain syndrome
     Dosage: 30 MG, UNK
     Route: 048
  2. TORADOL [Concomitant]
     Active Substance: KETOROLAC TROMETHAMINE
     Indication: Pain
     Dosage: UNK
     Route: 030
  3. DECADRON [Concomitant]
     Active Substance: DEXAMETHASONE
     Indication: Rash
     Dosage: 4 MG, UNK
     Route: 061
  4. ADVIL                              /00109201/ [Concomitant]
     Indication: Rash
     Dosage: 800 MG, UNK
     Route: 061

REACTIONS (2)
  - Drug ineffective [Unknown]
  - Manufacturing materials issue [Unknown]
